FAERS Safety Report 8562187 (Version 4)
Quarter: 2013Q1

REPORT INFORMATION
  Report Type: Spontaneous
  Country: US (occurrence: US)
  Receive Date: 20120515
  Receipt Date: 20130201
  Transmission Date: 20140127
  Serious: Yes (Hospitalization, Other)
  Sender: FDA-Public Use
  Company Number: PHEH2012US010051

PATIENT
  Sex: Female

DRUGS (16)
  1. TASIGNA [Suspect]
     Indication: CHRONIC MYELOID LEUKAEMIA
     Dosage: 300 MG, BID
     Route: 048
     Dates: start: 20120522
  2. FERROUS FUMARATE [Concomitant]
  3. GABAPENTIN [Concomitant]
  4. LASIX [Concomitant]
  5. ZOCOR [Concomitant]
  6. ECOTRIN [Concomitant]
  7. PEPCID [Concomitant]
  8. VERAPAMIL [Concomitant]
  9. CARDIZEM [Concomitant]
  10. RYTHMOL [Concomitant]
  11. ZYLOPRIM [Concomitant]
  12. LOPRESOR [Concomitant]
  13. DIGOXIN [Concomitant]
  14. ALLOPURINOL [Concomitant]
  15. BLOOD CELLS, PACKED HUMAN [Concomitant]
  16. IRON SUPPLEMENTS [Concomitant]

REACTIONS (13)
  - Cardiac disorder [Unknown]
  - Cardiac failure chronic [Unknown]
  - Blood pressure inadequately controlled [Recovered/Resolved]
  - Pneumonia [Unknown]
  - Dyspnoea [Recovered/Resolved]
  - Chest pain [Recovered/Resolved]
  - Atrial fibrillation [Recovering/Resolving]
  - Neoplasm progression [Unknown]
  - Malignant neoplasm progression [Unknown]
  - Eye infection [Unknown]
  - Eye pain [Unknown]
  - Constipation [Unknown]
  - Blood bilirubin increased [Recovered/Resolved]
